FAERS Safety Report 10517117 (Version 3)
Quarter: 2015Q1

REPORT INFORMATION
  Report Type: Spontaneous
  Country: US (occurrence: US)
  Receive Date: 20141014
  Receipt Date: 20150216
  Transmission Date: 20150720
  Serious: No
  Sender: FDA-Public Use
  Company Number: US-PFIZER INC-2014281312

PATIENT
  Age: 75 Year
  Sex: Male
  Weight: 64 kg

DRUGS (25)
  1. LUTEIN [Concomitant]
     Active Substance: LUTEIN
     Dosage: 450 MG, 1X/DAY (20MG)
     Route: 048
  2. LIPITOR [Suspect]
     Active Substance: ATORVASTATIN CALCIUM
     Indication: HYPERCHOLESTEROLAEMIA
  3. ALTACE [Concomitant]
     Active Substance: RAMIPRIL
     Dosage: 10 MG, 1X/DAY
     Route: 048
  4. GLUCOSAMINE [Concomitant]
     Active Substance: GLUCOSAMINE
     Dosage: UNK
  5. TRIMOX [Concomitant]
     Active Substance: AMOXICILLIN
     Dosage: 500 MG, UNK (4 CAPS 1 HR PRIOR TO DENTAL PROCEDURE)
  6. VICODIN [Concomitant]
     Active Substance: ACETAMINOPHEN\HYDROCODONE BITARTRATE
     Dosage: UNK, 2X/DAY(AS NEEDED) (HYDROCODONE BITARTRATE;5MG, PARACETAMOL; 325MG)
     Route: 048
  7. CENTRUM [Concomitant]
     Active Substance: VITAMINS
     Dosage: UNK, 1X/DAY
     Route: 048
  8. LIPITOR [Suspect]
     Active Substance: ATORVASTATIN CALCIUM
     Indication: BLOOD CHOLESTEROL INCREASED
  9. TYLENOL [Concomitant]
     Active Substance: ACETAMINOPHEN
     Dosage: 650 MG, UNK (EVERY 8 HOURS AS NEEDED)
     Route: 048
  10. LIPITOR [Suspect]
     Active Substance: ATORVASTATIN CALCIUM
     Indication: PROPHYLAXIS
     Dosage: 20 MG, DAILY
     Route: 048
     Dates: start: 20050217
  11. SAW PALMETTO [Concomitant]
     Active Substance: SAW PALMETTO
     Dosage: 160 MG, UNK
     Route: 048
  12. BACTROBAN [Concomitant]
     Active Substance: MUPIROCIN\MUPIROCIN CALCIUM
     Dosage: UNK, 3X/DAY ( PLACE 1 APPLICATION)
     Route: 061
  13. ACETYLSALICYLIC ACID [Concomitant]
     Active Substance: ASPIRIN
     Dosage: 325 MG, 1X/DAY
     Route: 048
  14. LOTRISONE [Concomitant]
     Active Substance: BETAMETHASONE DIPROPIONATE\CLOTRIMAZOLE
     Dosage: UNK, 2X/DAY (BETAMETHASONE DIPROPIONATE:0.05%, CLOTRIMAZOLE;1%)
  15. NITROSTAT [Concomitant]
     Active Substance: NITROGLYCERIN
     Dosage: 0.4 MG, AS NEEDED
     Route: 060
  16. METOPROLOL [Concomitant]
     Active Substance: METOPROLOL
     Dosage: 25 MG, 2X/DAY
     Route: 048
  17. NASONEX [Concomitant]
     Active Substance: MOMETASONE FUROATE
     Dosage: UNK, 2X/DAY
     Route: 045
  18. VITAMIN C [Concomitant]
     Active Substance: ASCORBIC ACID
     Dosage: 500 MG, 1X/DAY
     Route: 048
  19. ASPIRIN. [Concomitant]
     Active Substance: ASPIRIN
     Dosage: 325 MG, UNK
  20. LIDODERM [Concomitant]
     Active Substance: LIDOCAINE
     Dosage: 5 %, UNK (PLACE 2 PATCHES TOPICALLY ONCE PER DAY. 1 PATCH TO)
     Route: 061
  21. VITAMIN D [Concomitant]
     Active Substance: CHOLECALCIFEROL
     Dosage: 1000 IU, UNK
     Route: 048
  22. COQ 10 [Concomitant]
     Active Substance: UBIDECARENONE
     Dosage: 200 MG, 1X/DAY
     Route: 048
  23. TRIAMCINOLONE ACETONIDE. [Concomitant]
     Active Substance: TRIAMCINOLONE ACETONIDE
     Dosage: 0.1 %, 2X/DAY (EX LOTN) (PLACE 1 APPLICATION)
     Route: 061
  24. GLUCOSAMINE HCL [Concomitant]
     Active Substance: GLUCOSAMINE
     Dosage: 1000 IU, 2X/DAY
  25. VITAMIN B COMPLEX [Concomitant]
     Active Substance: CYANOCOBALAMIN\DEXPANTHENOL\NIACINAMIDE\PYRIDOXINE HYDROCHLORIDE\RIBOFLAVIN 5^-PHOSPHATE SODIUM\THIAMINE HYDROCHLORIDE\VITAMIN B COMPLEX
     Dosage: 250 MG, UNK (B 50B12)
     Route: 048

REACTIONS (3)
  - Personality disorder [Recovered/Resolved]
  - Myalgia [Recovered/Resolved]
  - Memory impairment [Recovered/Resolved]

NARRATIVE: CASE EVENT DATE: 201001
